FAERS Safety Report 4613689-9 (Version None)
Quarter: 2005Q1

REPORT INFORMATION
  Report Type: 
  Country: None (occurrence: None)
  Receive Date: 20050315
  Receipt Date: 20050222
  Transmission Date: 20050727
  Serious: Yes (Hospitalization)
  Sender: FDA-Public Use
  Company Number: 10399

PATIENT
  Age: 43 Year
  Sex: Male

DRUGS (5)
  1. PACLITAXEL [Suspect]
     Indication: STENT PLACEMENT
  2. ACETYLSALICYLIC ACID SRT [Concomitant]
  3. CLOPIDOGREL [Concomitant]
  4. HEPARIN [Concomitant]
  5. EPTIFIBATIDE [Concomitant]

REACTIONS (2)
  - CORONARY ARTERY ANEURYSM [None]
  - IMPLANT SITE REACTION [None]
